FAERS Safety Report 17367845 (Version 2)
Quarter: 2020Q1

REPORT INFORMATION
  Report Type: Spontaneous
  Country: US (occurrence: US)
  Receive Date: 20200204
  Receipt Date: 20200310
  Transmission Date: 20200409
  Serious: No
  Sender: FDA-Public Use
  Company Number: US-PFIZER INC-2020043468

PATIENT
  Age: 78 Year
  Sex: Male

DRUGS (2)
  1. RETACRIT [Suspect]
     Active Substance: EPOETIN ALFA-EPBX
     Dosage: UNK
     Dates: start: 201910
  2. RETACRIT [Suspect]
     Active Substance: EPOETIN ALFA-EPBX
     Indication: BLOOD COUNT ABNORMAL
     Dosage: UNK, WEEKLY

REACTIONS (2)
  - Therapeutic response unexpected [Unknown]
  - Energy increased [Unknown]

NARRATIVE: CASE EVENT DATE: 201910
